FAERS Safety Report 8895848 (Version 1)
Quarter: 2012Q4

REPORT INFORMATION
  Report Type: 
  Country: US (occurrence: US)
  Receive Date: 20121107
  Receipt Date: 20121107
  Transmission Date: 20130627
  Serious: Yes (Other)
  Sender: FDA-Public Use
  Company Number: US-MERCK-2011SP055448

PATIENT
  Age: 59 Year
  Sex: Female

DRUGS (3)
  1. REBETOL [Suspect]
     Indication: HEPATITIS C
     Dosage: UNK
     Dates: start: 20110909, end: 20120217
  2. VICTRELIS [Suspect]
     Indication: HEPATITIS C
     Dosage: UNK
     Dates: start: 20111007, end: 20111130
  3. PEGASYS [Suspect]
     Indication: HEPATITIS C
     Dosage: UNK
     Dates: start: 20110909, end: 20120217

REACTIONS (15)
  - Unevaluable event [Unknown]
  - Dyspnoea [Unknown]
  - Red blood cell count decreased [Unknown]
  - White blood cell count decreased [Unknown]
  - Nausea [Unknown]
  - Injection site reaction [Unknown]
  - Dizziness [Unknown]
  - Feeling abnormal [Unknown]
  - Asthenia [Unknown]
  - Middle insomnia [Unknown]
  - Scratch [Unknown]
  - Hyperhidrosis [Unknown]
  - Drug ineffective [Unknown]
  - Drug hypersensitivity [Unknown]
  - Syncope [Unknown]
